FAERS Safety Report 7646976-0 (Version None)
Quarter: 2011Q3

REPORT INFORMATION
  Report Type: 
  Country: None (occurrence: None)
  Receive Date: 20110801
  Receipt Date: 20110719
  Transmission Date: 20111222
  Serious: Yes (Hospitalization)
  Sender: FDA-Public Use
  Company Number: JP-ELI_LILLY_AND_COMPANY-JP201106006550

PATIENT
  Sex: Female
  Weight: 45.2 kg

DRUGS (6)
  1. VILDAGLIPTIN [Concomitant]
     Dosage: UNK
     Route: 048
  2. VOGLIBOSE [Concomitant]
     Dosage: UNK
     Route: 048
  3. FORTEO [Suspect]
     Indication: OSTEOPOROSIS
     Dosage: 20 UG, QD
     Route: 058
     Dates: end: 20110621
  4. CALCIUM CARBONATE [Concomitant]
     Dosage: UNK
     Route: 048
  5. FOSRENOL [Concomitant]
     Dosage: UNK
     Route: 048
  6. OLOPATADINE HCL [Concomitant]
     Dosage: UNK
     Route: 048

REACTIONS (3)
  - FIBULA FRACTURE [None]
  - TIBIA FRACTURE [None]
  - FALL [None]
